FAERS Safety Report 7864787-8 (Version None)
Quarter: 2011Q4

REPORT INFORMATION
  Report Type: 
  Country: None (occurrence: None)
  Receive Date: 20111028
  Receipt Date: 20110323
  Transmission Date: 20120403
  Serious: No
  Sender: FDA-Public Use
  Company Number: US-GLAXOSMITHKLINE-A0763042A

PATIENT
  Age: 77 Year
  Sex: Male

DRUGS (3)
  1. ADVAIR DISKUS 100/50 [Suspect]
     Indication: CHRONIC OBSTRUCTIVE PULMONARY DISEASE
     Dosage: 1PUFF TWICE PER DAY
     Route: 055
     Dates: start: 20081201
  2. ADVAIR DISKUS 100/50 [Suspect]
     Indication: DYSPNOEA
     Dosage: 2PUFF TWICE PER DAY
     Route: 055
     Dates: start: 20100901
  3. ALBUTEROL [Concomitant]

REACTIONS (5)
  - ORTHOPNOEA [None]
  - THROAT IRRITATION [None]
  - BLOOD PRESSURE SYSTOLIC INCREASED [None]
  - SENSATION OF HEAVINESS [None]
  - BLOOD PRESSURE INCREASED [None]
